FAERS Safety Report 12412723 (Version 2)
Quarter: 2016Q2

REPORT INFORMATION
  Report Type: Report from Study
  Country: TW (occurrence: TW)
  Receive Date: 20160527
  Receipt Date: 20160602
  Transmission Date: 20160815
  Serious: Yes (Death, Hospitalization, Other)
  Sender: FDA-Public Use
  Company Number: TW-BRISTOL-MYERS SQUIBB COMPANY-BMS-2016-023319

PATIENT
  Age: 75 Year
  Sex: Female
  Weight: 42 kg

DRUGS (2)
  1. BLINDED NIVOLUMAB [Suspect]
     Active Substance: NIVOLUMAB
     Indication: GASTRIC CANCER
     Dosage: 3 MG/KG, Q2WK
     Route: 042
     Dates: start: 20151217, end: 20160303
  2. BLINDED PLACEBO [Suspect]
     Active Substance: INVESTIGATIONAL PRODUCT
     Indication: GASTRIC CANCER
     Dosage: 3 MG/KG, Q2WK
     Route: 042
     Dates: start: 20151217, end: 20160303

REACTIONS (2)
  - Respiratory failure [Fatal]
  - Hypophagia [Unknown]

NARRATIVE: CASE EVENT DATE: 20160321
